FAERS Safety Report 5305880-3 (Version None)
Quarter: 2007Q2

REPORT INFORMATION
  Report Type: 
  Country: None (occurrence: None)
  Receive Date: 20070424
  Receipt Date: 20060921
  Transmission Date: 20071010
  Serious: Yes (Hospitalization)
  Sender: FDA-Public Use
  Company Number: US-AMGEN-US189346

PATIENT
  Sex: Male

DRUGS (20)
  1. PANITUMUMAB [Suspect]
     Indication: COLORECTAL CANCER
     Route: 042
     Dates: start: 20060323
  2. OXALIPLATIN [Suspect]
     Route: 042
  3. LEUCOVORIN CALCIUM [Suspect]
     Route: 042
  4. FLUOROURACIL [Suspect]
     Route: 042
  5. BEVACIZUMAB [Concomitant]
     Route: 042
  6. PERCOCET [Concomitant]
     Route: 048
     Dates: start: 20060502
  7. COMPAZINE [Concomitant]
     Route: 048
     Dates: start: 20060505
  8. LOMOTIL [Concomitant]
     Route: 048
     Dates: start: 20060506
  9. MEGACE [Concomitant]
     Route: 048
     Dates: start: 20060628
  10. OCTREOTIDE ACETATE [Concomitant]
     Route: 030
     Dates: start: 20060509
  11. CLONIDINE [Concomitant]
     Route: 048
     Dates: start: 20060320
  12. OLMESARTAN MEDOXOMIL [Concomitant]
     Route: 048
     Dates: start: 20060316
  13. CENTRUM SILVER [Concomitant]
     Route: 048
     Dates: start: 20060316
  14. CLEOCIN HYDROCHLORIDE [Concomitant]
     Route: 061
     Dates: start: 20060403
  15. GRANISETRON [Concomitant]
     Route: 048
     Dates: start: 20060323
  16. DEXAMETHASONE 0.5MG TAB [Concomitant]
     Route: 042
     Dates: start: 20060323
  17. CALCIUM GLUCONATE [Concomitant]
     Route: 042
     Dates: start: 20060323
  18. MAGNESIUM SULFATE [Concomitant]
     Route: 042
     Dates: start: 20060323
  19. FERRLECIT [Concomitant]
     Route: 042
     Dates: start: 20060325
  20. IMODIUM [Concomitant]
     Route: 048
     Dates: start: 20060405

REACTIONS (6)
  - ANOREXIA [None]
  - ASTHENIA [None]
  - DEHYDRATION [None]
  - DIARRHOEA [None]
  - DYSPNOEA [None]
  - PERICARDIAL EFFUSION [None]
